FAERS Safety Report 6376947-6 (Version None)
Quarter: 2009Q3

REPORT INFORMATION
  Report Type: 
  Country: None (occurrence: None)
  Receive Date: 20090925
  Receipt Date: 20090915
  Transmission Date: 20100115
  Serious: Yes (Life-Threatening, Other)
  Sender: FDA-Public Use
  Company Number: GB-PFIZER INC-2009268827

PATIENT
  Age: 69 Year

DRUGS (3)
  1. SOMATROPIN [Suspect]
     Indication: GROWTH HORMONE DEFICIENCY
     Dosage: UNK
     Route: 058
     Dates: start: 19990621
  2. REQUIP [Concomitant]
  3. SIMVASTATIN [Concomitant]
     Dosage: 40 MG, 1X/DAY
     Dates: start: 20060302

REACTIONS (1)
  - CEREBROVASCULAR ACCIDENT [None]
